FAERS Safety Report 7899085-X (Version None)
Quarter: 2011Q4

REPORT INFORMATION
  Report Type: 
  Country: None (occurrence: None)
  Receive Date: 20111107
  Receipt Date: 20111028
  Transmission Date: 20120403
  Serious: Yes (Hospitalization, Other)
  Sender: FDA-Public Use
  Company Number: US-ASTRAZENECA-2011SE58642

PATIENT
  Age: 61 Year
  Sex: Female
  Weight: 29.9 kg

DRUGS (9)
  1. ATENOLOL [Concomitant]
  2. SEROQUEL [Suspect]
     Indication: SLEEP DISORDER
     Dosage: ONCE
     Route: 048
  3. SPIRONOLACTONE [Concomitant]
  4. MARTEZATINE [Concomitant]
  5. POTASSIUM [Concomitant]
     Dosage: ONCE A MONTH
  6. SEROQUEL [Suspect]
     Route: 048
     Dates: start: 20071107
  7. LORAZEPAM [Concomitant]
  8. NORVASC [Concomitant]
  9. LEVOXYL [Concomitant]

REACTIONS (27)
  - MULTIPLE SCLEROSIS [None]
  - PAIN [None]
  - DEMENTIA [None]
  - DIZZINESS [None]
  - DYSPHAGIA [None]
  - NAUSEA [None]
  - FEELING ABNORMAL [None]
  - NERVOUSNESS [None]
  - THYROID DISORDER [None]
  - SOMNOLENCE [None]
  - ASTHENIA [None]
  - SUICIDAL IDEATION [None]
  - RENAL FAILURE CHRONIC [None]
  - HERNIA [None]
  - WRONG TECHNIQUE IN DRUG USAGE PROCESS [None]
  - VERTEBRAL COLUMN MASS [None]
  - CEREBROVASCULAR ACCIDENT [None]
  - NEOPLASM MALIGNANT [None]
  - INSOMNIA [None]
  - DEPRESSED MOOD [None]
  - ABASIA [None]
  - ARTHRITIS [None]
  - ABDOMINAL PAIN [None]
  - LUNG DISORDER [None]
  - WEIGHT DECREASED [None]
  - FEELING DRUNK [None]
  - OFF LABEL USE [None]
